FAERS Safety Report 7812648-2 (Version None)
Quarter: 2011Q4

REPORT INFORMATION
  Report Type: 
  Country: None (occurrence: None)
  Receive Date: 20111011
  Receipt Date: 20110922
  Transmission Date: 20120403
  Serious: Yes (Other)
  Sender: FDA-Public Use
  Company Number: 1000024245

PATIENT
  Sex: Female
  Weight: 65 kg

DRUGS (1)
  1. CITALOPRAM HYDROBROMIDE [Suspect]
     Indication: DEPRESSION
     Dosage: 20 MG (20 MG, 1 IN 1 D),ORAL
     Route: 048

REACTIONS (6)
  - MATERNAL EXPOSURE DURING PREGNANCY [None]
  - OBSTRUCTED LABOUR [None]
  - PREGNANCY [None]
  - HYDRONEPHROSIS [None]
  - UMBILICAL CORD AROUND NECK [None]
  - CAESAREAN SECTION [None]
